FAERS Safety Report 25326717 (Version 2)
Quarter: 2025Q2

REPORT INFORMATION
  Report Type: Spontaneous
  Country: US (occurrence: US)
  Receive Date: 20250516
  Receipt Date: 20250526
  Transmission Date: 20250716
  Serious: No
  Sender: SANOFI AVENTIS
  Company Number: US-SA-2025SA138526

PATIENT
  Age: 60 Year
  Sex: Male

DRUGS (2)
  1. ELOCTATE [Suspect]
     Active Substance: EFMOROCTOCOG ALFA
     Indication: Factor VIII deficiency
     Dosage: 4000 U, Q3D
     Route: 042
     Dates: start: 201207
  2. ELOCTATE [Suspect]
     Active Substance: EFMOROCTOCOG ALFA
     Indication: Factor VIII deficiency
     Dosage: 4000 U, Q3D
     Route: 042
     Dates: start: 201207

REACTIONS (3)
  - Haemorrhage [Recovered/Resolved]
  - Post procedural haemorrhage [Unknown]
  - Dental implantation [Unknown]

NARRATIVE: CASE EVENT DATE: 20250101
